FAERS Safety Report 11853665 (Version 4)
Quarter: 2016Q1

REPORT INFORMATION
  Report Type: Report from Study
  Country: US (occurrence: US)
  Receive Date: 20151219
  Receipt Date: 20160321
  Transmission Date: 20160526
  Serious: Yes (Hospitalization, Other)
  Sender: FDA-Public Use
  Company Number: US-AMGEN-USASL2015134078

PATIENT
  Age: 59 Year
  Sex: Male

DRUGS (1)
  1. ENBREL [Suspect]
     Active Substance: ETANERCEPT
     Indication: RHEUMATOID ARTHRITIS
     Dosage: 50 MG, ONCE A WEEK
     Route: 065
     Dates: start: 20150519

REACTIONS (3)
  - Arthralgia [Unknown]
  - Condition aggravated [Unknown]
  - Hospitalisation [Unknown]

NARRATIVE: CASE EVENT DATE: 2015
